FAERS Safety Report 6228600-7 (Version None)
Quarter: 2009Q2

REPORT INFORMATION
  Report Type: 
  Country: None (occurrence: None)
  Receive Date: 20090612
  Receipt Date: 20090601
  Transmission Date: 20091009
  Serious: Yes (Other)
  Sender: FDA-Public Use
  Company Number: BR-GENENTECH-284653

PATIENT
  Age: 12 Year
  Sex: Female

DRUGS (7)
  1. MABTHERA [Suspect]
     Indication: PROPHYLAXIS AGAINST TRANSPLANT REJECTION
     Dosage: 375 MG/M2, UNK
     Route: 065
  2. MYCOPHENOLATE MOFETIL [Suspect]
     Indication: PROPHYLAXIS
     Dosage: UNK
     Route: 065
  3. METHYLPREDNISOLONE [Suspect]
     Indication: PROPHYLAXIS
     Route: 065
  4. PREDNISONE [Suspect]
     Indication: PROPHYLAXIS
     Route: 065
  5. TACROLIMUS [Suspect]
     Indication: PROPHYLAXIS
     Route: 065
  6. CYCLOSPORINE [Suspect]
     Indication: PROPHYLAXIS
     Route: 065
  7. ACYCLOVIR [Suspect]
     Indication: PROPHYLAXIS
     Route: 065

REACTIONS (3)
  - HYPOGAMMAGLOBULINAEMIA [None]
  - LYMPHOPROLIFERATIVE DISORDER [None]
  - UPPER RESPIRATORY TRACT INFECTION [None]
